FAERS Safety Report 8927284 (Version 3)
Quarter: 2013Q1

REPORT INFORMATION
  Report Type: Report from Study
  Country: GB (occurrence: GB)
  Receive Date: 20121127
  Receipt Date: 20130308
  Transmission Date: 20140127
  Serious: Yes (Hospitalization)
  Sender: FDA-Public Use
  Company Number: GB-NAPPMUNDI-GBR-2012-0012137

PATIENT
  Age: 85 Year
  Sex: Female

DRUGS (4)
  1. BUTRANS [Suspect]
     Indication: PAIN
     Dosage: 10 MCG, Q1H
     Route: 062
     Dates: start: 20090604
  2. CO-BENELDOPA [Concomitant]
     Dosage: UNK
     Dates: start: 20120813
  3. CO-CARELDOPA [Concomitant]
     Dosage: UNK
     Dates: start: 20010604
  4. SINEMET PLUS [Concomitant]
     Dosage: UNK
     Dates: start: 19930903

REACTIONS (1)
  - Inguinal hernia, obstructive [Recovered/Resolved]
